FAERS Safety Report 6234836-1 (Version None)
Quarter: 2009Q2

REPORT INFORMATION
  Report Type: 
  Country: None (occurrence: None)
  Receive Date: 20090618
  Receipt Date: 20090608
  Transmission Date: 20091009
  Serious: Yes (Other)
  Sender: FDA-Public Use
  Company Number: GB-JNJFOC-20090303623

PATIENT
  Age: 53 Year
  Sex: Female

DRUGS (5)
  1. REMICADE [Suspect]
     Indication: ANKYLOSING SPONDYLITIS
     Route: 042
  2. SULFASALAZINE [Concomitant]
  3. NABUMETONE [Concomitant]
  4. FERROUS SULFATE TAB [Concomitant]
  5. PARACETAMOL [Concomitant]

REACTIONS (1)
  - PARAESTHESIA [None]
